FAERS Safety Report 5501952-9 (Version None)
Quarter: 2007Q4

REPORT INFORMATION
  Report Type: 
  Country: None (occurrence: None)
  Receive Date: 20071030
  Receipt Date: 20071019
  Transmission Date: 20080405
  Serious: Yes (Hospitalization, Disabling, Other)
  Sender: FDA-Public Use
  Company Number: US-ROCHE-428465

PATIENT
  Age: 18 Year
  Sex: Female
  Weight: 147 kg

DRUGS (3)
  1. ACCUTANE [Suspect]
     Route: 048
     Dates: start: 20010718, end: 20011201
  2. TYLENOL (CAPLET) [Concomitant]
     Indication: HEADACHE
  3. UNSPECIFIED ANTIBIOTICS [Concomitant]

REACTIONS (50)
  - ANOREXIA [None]
  - ANXIETY [None]
  - ARTHRITIS [None]
  - BACK PAIN [None]
  - BLOOD ALBUMIN DECREASED [None]
  - BLOOD CHOLESTEROL INCREASED [None]
  - BLOOD GLUCOSE INCREASED [None]
  - BLOOD TRIGLYCERIDES INCREASED [None]
  - BRONCHOPNEUMONIA [None]
  - BRUXISM [None]
  - COLITIS [None]
  - COLITIS ULCERATIVE [None]
  - CONSTIPATION [None]
  - CROHN'S DISEASE [None]
  - DEAFNESS UNILATERAL [None]
  - DEHYDRATION [None]
  - DEPENDENCE [None]
  - DEPRESSION [None]
  - ECZEMA NUMMULAR [None]
  - GASTRIC ULCER [None]
  - GASTROINTESTINAL DISORDER [None]
  - GLYCOSYLATED HAEMOGLOBIN INCREASED [None]
  - HEPATIC STEATOSIS [None]
  - HYPOAESTHESIA [None]
  - INFLAMMATORY BOWEL DISEASE [None]
  - INJURY [None]
  - INSOMNIA [None]
  - IRON DEFICIENCY ANAEMIA [None]
  - IRRITABLE BOWEL SYNDROME [None]
  - LIP ULCERATION [None]
  - LIVER FUNCTION TEST ABNORMAL [None]
  - MEGACOLON [None]
  - MICROCYTIC ANAEMIA [None]
  - NECK INJURY [None]
  - NOCTURNAL DYSPNOEA [None]
  - OEDEMA PERIPHERAL [None]
  - OESOPHAGEAL ULCER [None]
  - ORAL HERPES [None]
  - ORAL INTAKE REDUCED [None]
  - PHARYNGOLARYNGEAL PAIN [None]
  - PLEURISY [None]
  - PNEUMONIA [None]
  - RHINITIS ALLERGIC [None]
  - SINUSITIS [None]
  - SKIN PAPILLOMA [None]
  - SUPRAVENTRICULAR TACHYCARDIA [None]
  - THROMBOCYTOPENIA [None]
  - UPPER RESPIRATORY TRACT INFECTION [None]
  - VENTRICULAR EXTRASYSTOLES [None]
  - VISUAL FIELD DEFECT [None]
